FAERS Safety Report 10213349 (Version 1)
Quarter: 2014Q2

REPORT INFORMATION
  Report Type: Spontaneous
  Country: US (occurrence: US)
  Receive Date: 20140603
  Receipt Date: 20140603
  Transmission Date: 20141212
  Serious: No
  Sender: FDA-Public Use
  Company Number: US-BAYER-2014-082311

PATIENT
  Age: 60 Year
  Sex: Female
  Weight: 77.1 kg

DRUGS (11)
  1. BETASERON [Suspect]
     Dosage: 0.25 MG (1ML), EVERY OTHER DAY
     Route: 058
  2. BACLOFEN [Concomitant]
     Dosage: TAB 10MG
     Route: 048
  3. ROPINIROLE [Concomitant]
     Dosage: TAB 0.25MG
     Route: 048
  4. PROZAC [Concomitant]
     Dosage: CAP 20MG
     Route: 048
  5. LEVOTHYROXIN [Concomitant]
     Dosage: TAB 100 MCG
     Route: 048
  6. PROVIGIL [Concomitant]
     Dosage: TAB 200MG
     Route: 048
  7. NUVIGIL [Concomitant]
     Dosage: TAB 50MG
     Route: 048
  8. FLEXERIL [Concomitant]
     Dosage: TAB 5MG
     Route: 048
  9. NAPROXEN SOD [Concomitant]
     Dosage: TAB 275MG
     Route: 048
  10. VITAMIN D [Concomitant]
     Dosage: CAP 400UNIT
     Route: 048
  11. ZINC [Concomitant]
     Dosage: CAP 30MG
     Route: 048

REACTIONS (3)
  - Musculoskeletal stiffness [Unknown]
  - Headache [Unknown]
  - Gait disturbance [Unknown]
